FAERS Safety Report 18136455 (Version 1)
Quarter: 2020Q3

REPORT INFORMATION
  Report Type: Spontaneous
  Country: US (occurrence: US)
  Receive Date: 20200811
  Receipt Date: 20200811
  Transmission Date: 20201103
  Serious: Yes (Hospitalization, Other)
  Sender: FDA-Public Use
  Company Number: US-SA-2020SA203989

PATIENT

DRUGS (2)
  1. LANTUS SOLOSTAR [Suspect]
     Active Substance: INSULIN GLARGINE
     Indication: TYPE 2 DIABETES MELLITUS
     Dosage: 20 IU, QD,DEPENDS ON BS (BLOOD SUGAR) READINGS
     Route: 065
     Dates: start: 2000
  2. JANUVIA [Concomitant]
     Active Substance: SITAGLIPTIN PHOSPHATE
     Dosage: ONCE DAILY
     Route: 065

REACTIONS (5)
  - Procedural pain [Unknown]
  - Glycosylated haemoglobin increased [Unknown]
  - Tremor [Unknown]
  - Blood glucose increased [Unknown]
  - Small intestinal obstruction [Unknown]
